FAERS Safety Report 7576111-9 (Version None)
Quarter: 2011Q2

REPORT INFORMATION
  Report Type: 
  Country: None (occurrence: None)
  Receive Date: 20110623
  Receipt Date: 20110623
  Transmission Date: 20111010
  Serious: Yes (Other)
  Sender: FDA-Public Use
  Company Number: None

PATIENT
  Age: 57 Year
  Sex: Female
  Weight: 68.0396 kg

DRUGS (2)
  1. NEILMED SINUSURF [Suspect]
     Dosage: 2 SQUIRTS AM + PM MOUTH
     Route: 048
     Dates: start: 20110412
  2. AVELOX [Suspect]
     Indication: SINUSITIS
     Dosage: 400MG 1 TABLET ONCE PER DAY MOUTH
     Route: 048
     Dates: start: 20110402

REACTIONS (2)
  - ANOSMIA [None]
  - AGEUSIA [None]
